FAERS Safety Report 13097711 (Version 2)
Quarter: 2017Q1

REPORT INFORMATION
  Report Type: Report from Study
  Country: None (occurrence: BE)
  Receive Date: 20170109
  Receipt Date: 20170112
  Transmission Date: 20170428
  Serious: Yes (Hospitalization)
  Sender: FDA-Public Use
  Company Number: BE-ABBVIE-17K-013-1831095-00

PATIENT
  Age: 72 Year
  Sex: Female

DRUGS (4)
  1. DUODOPA [Suspect]
     Active Substance: CARBIDOPA\LEVODOPA
     Indication: PARKINSON^S DISEASE
     Dosage: AM= 7 ML ; CD = 3.8 ML/H DURING 16 HRS; ED= 4 ML
     Route: 050
     Dates: start: 20141215, end: 20141219
  2. DUODOPA [Suspect]
     Active Substance: CARBIDOPA\LEVODOPA
     Dosage: AM+ 7 ML; CD= 4.2 ML/H DURING 16 HRS; ED= 4 ML
     Route: 050
     Dates: start: 20141219, end: 20161231
  3. DUODOPA [Suspect]
     Active Substance: CARBIDOPA\LEVODOPA
     Dosage: AM+ 7 ML; CD= 4.2 ML/H DURING 16 HRS; ED= 4 ML
     Route: 050
     Dates: start: 20161231, end: 20170104
  4. DUODOPA [Suspect]
     Active Substance: CARBIDOPA\LEVODOPA
     Dosage: AM= 7 ML; CD= 4.2 ML/H DURING 16 HRS; ED= 4 ML
     Route: 050
     Dates: start: 20170104

REACTIONS (2)
  - Device dislocation [Recovered/Resolved]
  - Incorrect route of drug administration [Recovered/Resolved]

NARRATIVE: CASE EVENT DATE: 20161231
